FAERS Safety Report 19841580 (Version 1)
Quarter: 2021Q3

REPORT INFORMATION
  Report Type: Spontaneous
  Country: DE (occurrence: DE)
  Receive Date: 20210915
  Receipt Date: 20210915
  Transmission Date: 20211014
  Serious: Yes (Other)
  Sender: FDA-Public Use
  Company Number: DE-ANIPHARMA-2021-DE-000205

PATIENT
  Age: 61 Year
  Sex: Female

DRUGS (4)
  1. NEBIVOLOL STADA [Suspect]
     Active Substance: NEBIVOLOL HYDROCHLORIDE
     Dosage: 1 DF DAILY
     Route: 048
     Dates: start: 2020
  2. CANDESARTAN CILEXETIL. [Suspect]
     Active Substance: CANDESARTAN CILEXETIL
     Indication: PRODUCT USED FOR UNKNOWN INDICATION
     Dosage: 4 MG QD
     Route: 048
     Dates: start: 2020
  3. ASPIRIN. [Suspect]
     Active Substance: ASPIRIN
     Dosage: 100 MG QD
     Route: 048
     Dates: start: 2020
  4. ATORVASTATIN ARISTO [Suspect]
     Active Substance: ATORVASTATIN CALCIUM
     Dosage: 10 MG QD
     Route: 048
     Dates: start: 2020

REACTIONS (3)
  - Asthma [Not Recovered/Not Resolved]
  - Arrhythmia [Not Recovered/Not Resolved]
  - Dyspnoea [Not Recovered/Not Resolved]

NARRATIVE: CASE EVENT DATE: 2020
